FAERS Safety Report 16922121 (Version 1)
Quarter: 2019Q4

REPORT INFORMATION
  Report Type: Spontaneous
  Country: CA (occurrence: CA)
  Receive Date: 20191015
  Receipt Date: 20191015
  Transmission Date: 20200122
  Serious: Yes (Hospitalization)
  Sender: FDA-Public Use
  Company Number: CA-HLSUS-2019-CA-001352

PATIENT
  Sex: Male

DRUGS (1)
  1. CLOZAPINE. [Suspect]
     Active Substance: CLOZAPINE
     Indication: PRODUCT USED FOR UNKNOWN INDICATION
     Route: 065

REACTIONS (11)
  - Apathy [Recovered/Resolved]
  - Delirium [Recovered/Resolved]
  - Persecutory delusion [Recovered/Resolved]
  - Social avoidant behaviour [Recovered/Resolved]
  - Depression [Recovered/Resolved]
  - Suicidal ideation [Recovered/Resolved]
  - Schizophrenia [Recovered/Resolved]
  - Weight increased [Recovered/Resolved]
  - Psychotic disorder [Recovered/Resolved]
  - Autism spectrum disorder [Recovered/Resolved]
  - Loss of libido [Recovered/Resolved]
